FAERS Safety Report 9710358 (Version 2)
Quarter: 2013Q4

REPORT INFORMATION
  Report Type: Spontaneous
  Country: US (occurrence: US)
  Receive Date: 20131126
  Receipt Date: 20131126
  Transmission Date: 20140711
  Serious: Yes (Hospitalization)
  Sender: FDA-Public Use
  Company Number: US-BRISTOL-MYERS SQUIBB COMPANY-18823211

PATIENT
  Age: 64 Year
  Sex: Male

DRUGS (6)
  1. BYETTA [Suspect]
  2. PERCOCET [Suspect]
  3. LEVEMIR [Suspect]
  4. CREON [Concomitant]
  5. TYLENOL #3 [Concomitant]
  6. NEXIUM [Concomitant]

REACTIONS (1)
  - Pancreatitis acute [Unknown]
